FAERS Safety Report 5404118-6 (Version None)
Quarter: 2007Q3

REPORT INFORMATION
  Report Type: 
  Country: None (occurrence: None)
  Receive Date: 20070731
  Receipt Date: 20070724
  Transmission Date: 20080115
  Serious: Yes (Life-Threatening, Hospitalization, Other)
  Sender: FDA-Public Use
  Company Number: 163-20785-07061305

PATIENT
  Age: 64 Year
  Sex: Male

DRUGS (7)
  1. THALOMID [Suspect]
     Indication: MULTIPLE MYELOMA
     Dosage: 100 MG, DAILY, ORAL
     Route: 048
     Dates: start: 20061103, end: 20070501
  2. PROCRIT [Concomitant]
  3. GLIPIZIDE [Concomitant]
  4. ALLOPURINOL [Concomitant]
  5. FERROUS SULFATE TAB [Concomitant]
  6. SULAR [Concomitant]
  7. MARINOL [Concomitant]

REACTIONS (8)
  - ACIDOSIS [None]
  - ANAEMIA [None]
  - BLOOD BICARBONATE DECREASED [None]
  - DIALYSIS [None]
  - HYPERKALAEMIA [None]
  - RENAL FAILURE ACUTE [None]
  - RENAL FAILURE CHRONIC [None]
  - RESPIRATORY FAILURE [None]
